FAERS Safety Report 10238038 (Version 1)
Quarter: 2014Q2

REPORT INFORMATION
  Report Type: Spontaneous
  Country: US (occurrence: US)
  Receive Date: 20140616
  Receipt Date: 20140616
  Transmission Date: 20141212
  Serious: Yes (Other)
  Sender: FDA-Public Use
  Company Number: US-JNJFOC-20140602180

PATIENT
  Sex: 0

DRUGS (4)
  1. DOXORUBICIN [Suspect]
     Indication: BREAST CANCER
     Route: 042
  2. CYCLOPHOSPHAMIDE [Suspect]
     Indication: BREAST CANCER
     Route: 065
  3. PACLITAXEL [Suspect]
     Indication: BREAST CANCER
     Route: 065
  4. DOCETAXEL [Suspect]
     Indication: BREAST CANCER
     Route: 065

REACTIONS (2)
  - Cognitive disorder [Unknown]
  - Cerebrovascular disorder [Unknown]
